FAERS Safety Report 5162155-3 (Version None)
Quarter: 2006Q4

REPORT INFORMATION
  Report Type: 
  Country: None (occurrence: None)
  Receive Date: 20061120
  Receipt Date: 20061109
  Transmission Date: 20070319
  Serious: Yes (Hospitalization, Other)
  Sender: FDA-Public Use
  Company Number: HQWYE226110NOV06

PATIENT
  Age: 22 Year
  Sex: Female

DRUGS (3)
  1. RHINADVIL (IBUPROFEN/ PSEUDOEPHEDRINE HYDROCHLORIDE, TABLET) [Suspect]
     Dosage: ORAL
     Route: 048
  2. ANTADYS (FLURBIPROFEN, ) [Suspect]
     Dosage: 100 MG TABLETS
  3. RHINOFLUIMUCIL (ACETYLCYSTEINE/BENZALKONIUM CHLORIDE/TUAMINOHEPTANE, ) [Suspect]
     Route: 045

REACTIONS (9)
  - ANTIBODY TEST POSITIVE [None]
  - AUTOIMMUNE HEPATITIS [None]
  - CHOLESTASIS [None]
  - CYTOLYTIC HEPATITIS [None]
  - HEPATIC FAILURE [None]
  - INFLAMMATION [None]
  - MYALGIA [None]
  - SPLENOMEGALY [None]
  - WEIGHT DECREASED [None]
